APPROVED DRUG PRODUCT: ANTHELIOS 40
Active Ingredient: AVOBENZONE; ECAMSULE; OCTOCRYLENE; TITANIUM DIOXIDE
Strength: 2%;3%;10%;5%
Dosage Form/Route: CREAM;TOPICAL
Application: N022009 | Product #001
Applicant: LOREAL USA PRODUCTS INC
Approved: Mar 31, 2008 | RLD: Yes | RS: Yes | Type: OTC